FAERS Safety Report 6400552-6 (Version None)
Quarter: 2009Q4

REPORT INFORMATION
  Report Type: 
  Country: None (occurrence: None)
  Receive Date: 20091013
  Receipt Date: 20091013
  Transmission Date: 20100525
  Serious: Yes (Other)
  Sender: FDA-Public Use
  Company Number: None

PATIENT
  Age: 23 Year
  Sex: Female

DRUGS (3)
  1. DYSPORT [Suspect]
     Indication: SKIN WRINKLING
     Dosage: 100 UNITS, SINGLE CYCLE
     Dates: start: 20090901, end: 20090914
  2. DYSPORT [Suspect]
     Indication: SKIN WRINKLING
  3. KRAVIA [Concomitant]

REACTIONS (7)
  - DYSPNOEA [None]
  - FACIAL PARESIS [None]
  - HEADACHE [None]
  - SPEECH DISORDER [None]
  - SWOLLEN TONGUE [None]
  - THROAT TIGHTNESS [None]
  - UPPER AIRWAY OBSTRUCTION [None]
